FAERS Safety Report 10206204 (Version 1)
Quarter: 2014Q2

REPORT INFORMATION
  Report Type: Spontaneous
  Country: US (occurrence: None)
  Receive Date: 20140527
  Receipt Date: 20140527
  Transmission Date: 20141212
  Serious: No
  Sender: FDA-Public Use
  Company Number: None

PATIENT
  Age: 34 Year
  Sex: Male
  Weight: 97.52 kg

DRUGS (2)
  1. OXYCONTIN [Suspect]
     Indication: ARTHROPATHY
     Route: 048
     Dates: start: 20140521, end: 20140525
  2. ADVIL [Concomitant]

REACTIONS (1)
  - Headache [None]
